FAERS Safety Report 5788849-4 (Version None)
Quarter: 2008Q2

REPORT INFORMATION
  Report Type: 
  Country: None (occurrence: None)
  Receive Date: 20080626
  Receipt Date: 20071214
  Transmission Date: 20081010
  Serious: No
  Sender: FDA-Public Use
  Company Number: US-ASTRAZENECA-2007UW28471

PATIENT
  Age: 3 Year
  Sex: Female
  Weight: 13.2 kg

DRUGS (2)
  1. PULMICORT RESPULES [Suspect]
     Indication: DYSPNOEA
     Route: 055
  2. ALBUTEROL [Concomitant]

REACTIONS (2)
  - AGITATION [None]
  - IRRITABILITY [None]
